FAERS Safety Report 23897117 (Version 6)
Quarter: 2024Q4

REPORT INFORMATION
  Report Type: Spontaneous
  Country: JP (occurrence: JP)
  Receive Date: 20240524
  Receipt Date: 20241021
  Transmission Date: 20250115
  Serious: Yes (Other)
  Sender: RADIUS PHARM
  Company Number: JP-RADIUS HEALTH INC.-2024JP003214

PATIENT
  Age: 74 Year
  Sex: Female

DRUGS (21)
  1. ABALOPARATIDE [Suspect]
     Active Substance: ABALOPARATIDE
     Indication: Osteoporosis
     Dosage: 80 MICROGRAM, QD, 10 AM
     Route: 058
     Dates: start: 20240220, end: 20240313
  2. ABALOPARATIDE [Suspect]
     Active Substance: ABALOPARATIDE
     Dosage: 80 MICROGRAM, QD, 10 AM
     Route: 058
     Dates: start: 20240327, end: 20240408
  3. PREDONINE [Concomitant]
     Active Substance: PREDNISOLONE
     Indication: Collagen disorder
     Dosage: 10 MILLIGRAM, QD, AFTER BREAKFAST
     Route: 048
     Dates: start: 2011
  4. SULFAMETHOXAZOLE\TRIMETHOPRIM [Concomitant]
     Active Substance: SULFAMETHOXAZOLE\TRIMETHOPRIM
     Indication: Collagen disorder
     Dosage: 1 DF PER DAY, MORNING
     Route: 048
     Dates: start: 2011
  5. VONOPRAZAN FUMARATE [Concomitant]
     Active Substance: VONOPRAZAN FUMARATE
     Indication: Gastrooesophageal reflux disease
     Dosage: 20 MILLIGRAM, QD, AFTER BREAKFAST
     Route: 048
     Dates: start: 2011
  6. SODIUM FERROUS CITRATE [Concomitant]
     Active Substance: SODIUM FERROUS CITRATE
     Indication: Iron deficiency anaemia
     Dosage: 50 MILLIGRAM, QD, MORNING
     Route: 048
     Dates: start: 2011
  7. LINAGLIPTIN [Concomitant]
     Active Substance: LINAGLIPTIN
     Indication: Type 2 diabetes mellitus
     Dosage: 5 MILLIGRAM, QD, AFTER BREAKFAST
     Route: 048
     Dates: start: 2011
  8. GLICLAZIDE [Concomitant]
     Active Substance: GLICLAZIDE
     Indication: Type 2 diabetes mellitus
     Dosage: 20 MILLIGRAM, QD, AFTER BREAKFAST
     Route: 048
     Dates: start: 2011
  9. FEBUXOSTAT [Concomitant]
     Active Substance: FEBUXOSTAT
     Indication: Gout
     Dosage: 10 MILLIGRAM, QD, AFTER BREAKFAST
     Route: 048
  10. METHYLCOBALAMIN [Concomitant]
     Active Substance: METHYLCOBALAMIN
     Indication: Collagen disorder
     Dosage: THREE TABLETS THRICE DAILY, AFTER BREAKFAST AND LUNCH, AT BEDTIME
     Route: 048
  11. URSODIOL [Concomitant]
     Active Substance: URSODIOL
     Indication: Product used for unknown indication
     Dosage: 300 MILLIGRAM, TID, AFTER EACH MEAL
     Route: 048
  12. ACETAMINOPHEN\TRAMADOL HYDROCHLORIDE [Concomitant]
     Active Substance: ACETAMINOPHEN\TRAMADOL HYDROCHLORIDE
     Indication: Pain
     Dosage: THREE TABLETS THRICE DAILY, AFTER EACH MEAL
     Route: 048
  13. MIROGABALIN BESYLATE [Concomitant]
     Active Substance: MIROGABALIN BESYLATE
     Indication: Pain
     Dosage: 10 MILLIGRAM, BID, AFTER BREAKFAST AND SUPPER
     Route: 048
  14. DULOXETINE [Concomitant]
     Active Substance: DULOXETINE
     Indication: Pain
     Dosage: 60 MILLIGRAM, QD, AFTER SUPPER
     Route: 048
  15. DAYVIGO [Concomitant]
     Active Substance: LEMBOREXANT
     Indication: Insomnia
     Dosage: 5 MILLIGRAM, QD, AT BEDTIME
     Route: 048
  16. CYCLOPHOSPHAMIDE [Concomitant]
     Active Substance: CYCLOPHOSPHAMIDE
     Indication: Collagen disorder
     Dosage: 50 MILLIGRAM, QOD, AFTER SUPPER
     Route: 048
  17. LEVOCETIRIZINE HYDROCHLORIDE [Concomitant]
     Active Substance: LEVOCETIRIZINE HYDROCHLORIDE
     Indication: Collagen disorder
     Dosage: 10 MILLILITER, QD, AT BEDTIME
     Route: 048
  18. SULFAMETHOXAZOLE\TRIMETHOPRIM [Concomitant]
     Active Substance: SULFAMETHOXAZOLE\TRIMETHOPRIM
     Indication: Product used for unknown indication
     Dosage: ONE TABLET ONCE DAILY AFTER BREAKFAST
     Route: 048
  19. AZOSEMIDE [Concomitant]
     Active Substance: AZOSEMIDE
     Indication: Product used for unknown indication
     Dosage: 30 MILLIGRAM, QD AFTER BREAKFAST
     Route: 048
  20. ALFACALCIDOL [Concomitant]
     Active Substance: ALFACALCIDOL
     Indication: Product used for unknown indication
     Dosage: 1 MICROGRAM, QD, AFTER BREAKFAST
     Route: 048
  21. TEPRENONE [Concomitant]
     Active Substance: TEPRENONE
     Indication: Product used for unknown indication
     Dosage: 3 DF THRICE DAILY, AFTER BREAKFAST AND LUNCH, AT BEDTIME
     Route: 048

REACTIONS (9)
  - Flushing [Recovered/Resolved]
  - Malaise [Recovered/Resolved]
  - Physical deconditioning [Recovered/Resolved]
  - Depressed level of consciousness [Recovered/Resolved]
  - Asthenia [Recovered/Resolved]
  - Dizziness [Recovered/Resolved]
  - Headache [Recovered/Resolved]
  - Hypoaesthesia [Recovered/Resolved]
  - Depressed level of consciousness [Recovered/Resolved]

NARRATIVE: CASE EVENT DATE: 20240228
